FAERS Safety Report 10727069 (Version 1)
Quarter: 2015Q1

REPORT INFORMATION
  Report Type: Report from Study
  Country: CO (occurrence: CO)
  Receive Date: 20150121
  Receipt Date: 20150121
  Transmission Date: 20150721
  Serious: Yes (Hospitalization)
  Sender: FDA-Public Use
  Company Number: CO-ABBVIE-15K-036-1335525-00

PATIENT
  Age: 69 Year
  Sex: Male
  Weight: 90 kg

DRUGS (2)
  1. HUMIRA [Suspect]
     Active Substance: ADALIMUMAB
     Indication: PSORIASIS
     Route: 058
     Dates: start: 20140825, end: 20150105
  2. AIRMAX [Concomitant]
     Indication: PRODUCT USED FOR UNKNOWN INDICATION

REACTIONS (3)
  - Influenza [Recovering/Resolving]
  - Pneumonia [Recovering/Resolving]
  - Nasal congestion [Recovering/Resolving]

NARRATIVE: CASE EVENT DATE: 20150110
